FAERS Safety Report 9267556 (Version 2)
Quarter: 2013Q2

REPORT INFORMATION
  Report Type: Spontaneous
  Country: JP (occurrence: JP)
  Receive Date: 20130502
  Receipt Date: 20130514
  Transmission Date: 20140414
  Serious: Yes (Death)
  Sender: FDA-Public Use
  Company Number: JP-GLAXOSMITHKLINE-B0887741A

PATIENT
  Age: 77 Year
  Sex: Male

DRUGS (6)
  1. LAMICTAL [Suspect]
     Indication: DEPRESSION
     Dosage: 25MG PER DAY
     Route: 048
     Dates: start: 20121212
  2. LAMICTAL [Suspect]
     Indication: DEPRESSION
     Route: 048
     Dates: end: 20130325
  3. LAMICTAL [Suspect]
     Indication: DEPRESSION
     Route: 048
     Dates: start: 20130326, end: 20130412
  4. EXCEGRAN [Concomitant]
     Indication: BIPOLAR DISORDER
     Dosage: 100MG THREE TIMES PER DAY
     Route: 048
     Dates: start: 20050930
  5. EXCEGRAN [Concomitant]
     Indication: BIPOLAR DISORDER
     Route: 048
     Dates: end: 20130408
  6. EXCEGRAN [Concomitant]
     Indication: BIPOLAR DISORDER
     Dosage: 100MG THREE TIMES PER DAY
     Route: 048
     Dates: start: 20130409, end: 20130412

REACTIONS (2)
  - Acute myocardial infarction [Fatal]
  - Mania [Unknown]
